FAERS Safety Report 15528794 (Version 1)
Quarter: 2018Q4

REPORT INFORMATION
  Report Type: Report from Study
  Country: US (occurrence: US)
  Receive Date: 20181018
  Receipt Date: 20181018
  Transmission Date: 20190205
  Serious: No
  Sender: FDA-Public Use
  Company Number: US-AMGEN-USASL2018141864

PATIENT
  Age: 67 Year
  Sex: Female

DRUGS (1)
  1. REPATHA [Suspect]
     Active Substance: EVOLOCUMAB
     Indication: TYPE IIA HYPERLIPIDAEMIA
     Dosage: 140 MG, Q2WK
     Route: 058

REACTIONS (8)
  - Nervousness [Unknown]
  - Rhinorrhoea [Unknown]
  - Asthenia [Unknown]
  - Bone pain [Unknown]
  - Myalgia [Unknown]
  - Chills [Unknown]
  - Somnolence [Unknown]
  - Back pain [Unknown]

NARRATIVE: CASE EVENT DATE: 201810
